FAERS Safety Report 10070779 (Version 2)
Quarter: 2014Q2

REPORT INFORMATION
  Report Type: Report from Study
  Country: BR (occurrence: BR)
  Receive Date: 20140410
  Receipt Date: 20140512
  Transmission Date: 20141212
  Serious: Yes (Hospitalization, Other)
  Sender: FDA-Public Use
  Company Number: PHHY2014BR043346

PATIENT
  Age: 75 Year
  Sex: Female

DRUGS (3)
  1. EXELON PATCH [Suspect]
     Indication: DEMENTIA ALZHEIMER^S TYPE
     Dosage: 9 MG/ 5 CM2  (4.6 MG/24 HOURS)
     Route: 062
  2. EXELON PATCH [Suspect]
     Dosage: 18 MG/10 CM2 (9.5 MG/24 HOURS)
     Route: 062
  3. LEXAPRO [Concomitant]
     Indication: DEPRESSION
     Dosage: 1 DF, DAILY
     Route: 048

REACTIONS (1)
  - Thrombosis [Unknown]
